FAERS Safety Report 6393944-5 (Version None)
Quarter: 2009Q4

REPORT INFORMATION
  Report Type: 
  Country: None (occurrence: None)
  Receive Date: 20091008
  Receipt Date: 20091002
  Transmission Date: 20100525
  Serious: Yes (Death, Hospitalization)
  Sender: FDA-Public Use
  Company Number: US-GILEAD-2009-0023760

PATIENT
  Sex: Female
  Weight: 108.96 kg

DRUGS (17)
  1. LETAIRIS [Suspect]
     Indication: PULMONARY ARTERIAL HYPERTENSION
     Route: 048
  2. REVATIO [Concomitant]
  3. OXYGEN [Concomitant]
  4. LASIX [Concomitant]
  5. SPIRONOLACTONE [Concomitant]
  6. NITROGLYCERIN [Concomitant]
  7. KLOR-CON M15 [Concomitant]
  8. PHENERGAN [Concomitant]
  9. MIRALAX [Concomitant]
  10. MORPHINE [Concomitant]
  11. ULTRAM ER [Concomitant]
  12. LORAZEPAM [Concomitant]
  13. LEXAPRO [Concomitant]
  14. AMBIEN [Concomitant]
  15. NEXIUM [Concomitant]
  16. ESTRADIOL [Concomitant]
  17. HYDROCODONE BITARTRATE AND ACETAMINOPHEN [Concomitant]

REACTIONS (3)
  - DEATH [None]
  - HEPATIC CIRRHOSIS [None]
  - HEPATIC MASS [None]
